FAERS Safety Report 8497328-5 (Version None)
Quarter: 2012Q3

REPORT INFORMATION
  Report Type: 
  Country: None (occurrence: None)
  Receive Date: 20120709
  Receipt Date: 20120608
  Transmission Date: 20120928
  Serious: No
  Sender: FDA-Public Use
  Company Number: US-AMGEN-USASP2012035971

PATIENT
  Age: 40 Year
  Sex: Female

DRUGS (11)
  1. ENBREL [Suspect]
     Indication: RHEUMATOID ARTHRITIS
     Dosage: 50 MG, QWK
     Dates: start: 20120607
  2. PLAVIX [Concomitant]
     Dosage: 1 MG, UNK
  3. LASIX [Concomitant]
     Dosage: 3 MG, UNK
  4. ASPIRIN [Concomitant]
     Dosage: 1 MG, UNK
  5. LORTAB [Concomitant]
     Dosage: 3 MG, UNK
  6. LIPITOR [Concomitant]
     Dosage: 1 MG, UNK
  7. IMDUR [Concomitant]
     Dosage: 1 MG, UNK
  8. KETOPROFEN [Concomitant]
     Dosage: 3 MG, UNK
  9. NIASPAN [Concomitant]
     Dosage: 1 MG, UNK
  10. METHOTREXATE [Concomitant]
     Dosage: 1 MG, UNK
  11. POTASSIUM CHLORIDE [Concomitant]
     Dosage: 8 UNK, UNK

REACTIONS (2)
  - WRONG TECHNIQUE IN DRUG USAGE PROCESS [None]
  - INJECTION SITE PAIN [None]
